FAERS Safety Report 11845886 (Version 1)
Quarter: 2015Q4

REPORT INFORMATION
  Report Type: Spontaneous
  Country: GB (occurrence: GB)
  Receive Date: 20151217
  Receipt Date: 20151217
  Transmission Date: 20160305
  Serious: Yes (Other)
  Sender: FDA-Public Use
  Company Number: PHHY2015GB163455

PATIENT
  Sex: Male

DRUGS (1)
  1. DOXORUBICIN [Suspect]
     Active Substance: DOXORUBICIN
     Indication: KAPOSI^S SARCOMA
     Dosage: 2 MG/ML, DILUTED 1: 1 WITH SALINE SOLUTION
     Route: 023

REACTIONS (2)
  - Pain [Recovered/Resolved]
  - Skin necrosis [Unknown]
